FAERS Safety Report 9677676 (Version 1)
Quarter: 2013Q4

REPORT INFORMATION
  Report Type: Spontaneous
  Country: US (occurrence: US)
  Receive Date: 20131108
  Receipt Date: 20131108
  Transmission Date: 20140711
  Serious: Yes (Hospitalization)
  Sender: FDA-Public Use
  Company Number: US-ASTELLAS-2013US011512

PATIENT
  Age: 56 Year
  Sex: Male
  Weight: 63 kg

DRUGS (1)
  1. PROGRAF [Suspect]
     Indication: LIVER TRANSPLANT
     Dosage: 0.5 MG, BID
     Route: 048

REACTIONS (3)
  - Liver disorder [Unknown]
  - Weight decreased [Unknown]
  - Diarrhoea [Unknown]
